FAERS Safety Report 7902070-2 (Version None)
Quarter: 2011Q4

REPORT INFORMATION
  Report Type: 
  Country: None (occurrence: None)
  Receive Date: 20111107
  Receipt Date: 20111107
  Transmission Date: 20120403
  Serious: Yes (Hospitalization)
  Sender: FDA-Public Use
  Company Number: None

PATIENT
  Age: 64 Year
  Sex: Male
  Weight: 110.3 kg

DRUGS (1)
  1. DOCETAXEL [Suspect]
     Indication: OESOPHAGEAL CARCINOMA
     Dosage: 160 MG, ONCE, IV
     Route: 042
     Dates: start: 20110923, end: 20110923

REACTIONS (4)
  - SEPSIS [None]
  - HYPOTENSION [None]
  - DEHYDRATION [None]
  - DIARRHOEA [None]
